FAERS Safety Report 21917503 (Version 1)
Quarter: 2023Q1

REPORT INFORMATION
  Report Type: Spontaneous
  Country: CH (occurrence: CH)
  Receive Date: 20230126
  Receipt Date: 20230126
  Transmission Date: 20230417
  Serious: Yes (Congenital Anomaly, Other)
  Sender: FDA-Public Use
  Company Number: CH-BoehringerIngelheim-2023-BI-214157

PATIENT
  Age: 58 Year
  Sex: Male

DRUGS (1)
  1. JARDIANCE [Suspect]
     Active Substance: EMPAGLIFLOZIN
     Indication: Blood glucose increased
     Dates: start: 202208

REACTIONS (2)
  - Infarction [Unknown]
  - Ventricular fibrillation [Unknown]

NARRATIVE: CASE EVENT DATE: 20221001
